FAERS Safety Report 23311811 (Version 1)
Quarter: 2023Q4

REPORT INFORMATION
  Report Type: Spontaneous
  Country: US (occurrence: US)
  Receive Date: 20231219
  Receipt Date: 20231219
  Transmission Date: 20240110
  Serious: Yes (Death, Hospitalization, Congenital Anomaly, Other)
  Sender: FDA-Public Use
  Company Number: US-CIPLA LTD.-2023US08179

PATIENT

DRUGS (4)
  1. HYDRALAZINE [Suspect]
     Active Substance: HYDRALAZINE HYDROCHLORIDE
     Dosage: UNK
     Route: 065
  2. MAGNESIUM SULFATE [Suspect]
     Active Substance: MAGNESIUM SULFATE\MAGNESIUM SULFATE HEPTAHYDRATE
     Dosage: UNK
     Route: 065
  3. BETAMETHASONE [Suspect]
     Active Substance: BETAMETHASONE\BETAMETHASONE DIPROPIONATE
     Dosage: UNK
     Route: 065
  4. LABETALOL [Suspect]
     Active Substance: LABETALOL\LABETALOL HYDROCHLORIDE
     Dosage: UNK
     Route: 065

REACTIONS (16)
  - Tracheal disorder [Fatal]
  - Heart disease congenital [Unknown]
  - Trisomy 21 [Unknown]
  - Multiple organ dysfunction syndrome [Unknown]
  - XYY syndrome [Unknown]
  - Foetal growth restriction [Unknown]
  - Low birth weight baby [Unknown]
  - Tracheal stenosis [Unknown]
  - Dandy-Walker syndrome [Unknown]
  - Premature baby [Unknown]
  - Syndactyly [Unknown]
  - Pulmonary hypertension [Unknown]
  - Craniofacial deformity [Unknown]
  - Vitello-intestinal duct remnant [Unknown]
  - Olfactory nerve agenesis [Unknown]
  - Foetal exposure during pregnancy [Unknown]
